FAERS Safety Report 12254540 (Version 1)
Quarter: 2016Q2

REPORT INFORMATION
  Report Type: Spontaneous
  Country: NL (occurrence: NL)
  Receive Date: 20160411
  Receipt Date: 20160411
  Transmission Date: 20160815
  Serious: Yes (Other)
  Sender: FDA-Public Use
  Company Number: PHHY2016NL046634

PATIENT
  Sex: Male

DRUGS (3)
  1. PREDNISOLONE SANDOZ [Suspect]
     Active Substance: PREDNISOLONE
     Indication: TEMPORAL ARTERITIS
     Dosage: 60 MG, UNK
     Route: 065
  2. PREDNISOLONE SANDOZ [Suspect]
     Active Substance: PREDNISOLONE
     Dosage: 1000 MG, UNK
     Route: 042
  3. PREDNISOLONE SANDOZ [Suspect]
     Active Substance: PREDNISOLONE
     Dosage: 30 MG, QD
     Route: 065

REACTIONS (4)
  - Loss of consciousness [Unknown]
  - Glossodynia [Unknown]
  - Dyspnoea [Unknown]
  - Shock [Unknown]
